FAERS Safety Report 25109843 (Version 2)
Quarter: 2025Q2

REPORT INFORMATION
  Report Type: Spontaneous
  Country: DE (occurrence: DE)
  Receive Date: 20250324
  Receipt Date: 20250409
  Transmission Date: 20250717
  Serious: Yes (Death, Other)
  Sender: ALKEM
  Company Number: DE-ALKEM LABORATORIES LIMITED-DE-ALKEM-2025-02871

PATIENT
  Age: 44 Year
  Sex: Female

DRUGS (1)
  1. FINGOLIMOD [Suspect]
     Active Substance: FINGOLIMOD
     Indication: Product used for unknown indication
     Route: 065

REACTIONS (1)
  - Bronchial carcinoma [Fatal]
